FAERS Safety Report 7971076-X (Version None)
Quarter: 2011Q4

REPORT INFORMATION
  Report Type: 
  Country: None (occurrence: None)
  Receive Date: 20111212
  Receipt Date: 20111212
  Transmission Date: 20120403
  Serious: Yes (Other)
  Sender: FDA-Public Use
  Company Number: None

PATIENT
  Age: 63 Year
  Sex: Male
  Weight: 108.86 kg

DRUGS (1)
  1. DABIGATRAN [Suspect]

REACTIONS (3)
  - VENTRICULAR TACHYCARDIA [None]
  - CARDIAC TAMPONADE [None]
  - PERICARDIAL EFFUSION [None]
